FAERS Safety Report 8247180-8 (Version None)
Quarter: 2012Q1

REPORT INFORMATION
  Report Type: 
  Country: None (occurrence: None)
  Receive Date: 20120330
  Receipt Date: 20120326
  Transmission Date: 20120608
  Serious: Yes (Death, Hospitalization)
  Sender: FDA-Public Use
  Company Number: JP-ELI_LILLY_AND_COMPANY-JP201201003258

PATIENT
  Sex: Male
  Weight: 64 kg

DRUGS (9)
  1. BASEN [Concomitant]
     Dosage: UNK
     Route: 048
  2. CANDESARTAN CILEXETIL [Concomitant]
     Dosage: UNK
     Route: 048
  3. PANVITAN [Concomitant]
     Dosage: 1 G, UNK
     Route: 048
     Dates: start: 20110615, end: 20120113
  4. FRESMIN S [Concomitant]
     Dosage: 1000 UG, UNK
     Route: 058
     Dates: start: 20110615, end: 20111119
  5. PARAPLATIN AQ [Concomitant]
     Indication: LUNG ADENOCARCINOMA STAGE IV
     Dosage: 610 MG, OTHER
     Route: 042
     Dates: start: 20110704, end: 20111108
  6. AMARYL [Concomitant]
     Dosage: UNK
     Route: 048
  7. ACTOS [Concomitant]
     Dosage: UNK
     Route: 048
  8. SITAGLIPTIN PHOSPHATE [Concomitant]
     Dosage: UNK
     Route: 048
  9. ALIMTA [Suspect]
     Indication: LUNG ADENOCARCINOMA STAGE IV
     Dosage: 912.5 MG, OTHER
     Route: 042
     Dates: start: 20110704, end: 20120110

REACTIONS (2)
  - NEOPLASM PROGRESSION [None]
  - LUNG DISORDER [None]
